FAERS Safety Report 6728183-9 (Version None)
Quarter: 2010Q2

REPORT INFORMATION
  Report Type: 
  Country: None (occurrence: None)
  Receive Date: 20100517
  Receipt Date: 20100506
  Transmission Date: 20101027
  Serious: Yes (Death, Other)
  Sender: FDA-Public Use
  Company Number: B0649040A

PATIENT
  Age: 16 Year
  Sex: Female

DRUGS (2)
  1. CEFUROXIME SODIUM [Suspect]
     Indication: SINUSITIS
     Dosage: 80ML SINGLE DOSE
     Route: 042
  2. GLUCOSE SOLUTION [Concomitant]
     Route: 042

REACTIONS (4)
  - CARDIO-RESPIRATORY ARREST [None]
  - DEATH [None]
  - LOSS OF CONSCIOUSNESS [None]
  - MYDRIASIS [None]
